FAERS Safety Report 23538415 (Version 1)
Quarter: 2024Q1

REPORT INFORMATION
  Report Type: Spontaneous
  Country: GB (occurrence: GB)
  Receive Date: 20240219
  Receipt Date: 20240219
  Transmission Date: 20240409
  Serious: Yes (Death, Hospitalization, Other)
  Sender: FDA-Public Use
  Company Number: GB-Crescent Pharma Limited-001202203-000055

PATIENT
  Age: 59 Year
  Sex: Male

DRUGS (232)
  1. HALOPERIDOL [Suspect]
     Active Substance: HALOPERIDOL
     Indication: Schizophrenia
     Dosage: DOSAGE TEXT: 40 MG, QD, THERAPY START DATE : ASKU , THERAPY END DATE : ASKU
     Route: 065
  2. HALOPERIDOL [Suspect]
     Active Substance: HALOPERIDOL
     Indication: Schizophrenia
     Dosage: DOSAGE TEXT: 20 MILLIGRAM, TWO TIMES A DAY (10 MG, 2X/DAY), THERAPY START DATE : ASKU , THERAPY E...
     Route: 065
  3. HALOPERIDOL [Suspect]
     Active Substance: HALOPERIDOL
     Indication: Schizophrenia
     Dosage: DOSAGE TEXT: 10 MILLIGRAM, ONCE A DAY (5 MILLIGRAM, BID), THERAPY START DATE : ASKU , THERAPY END...
     Route: 065
  4. HALOPERIDOL [Suspect]
     Active Substance: HALOPERIDOL
     Indication: Schizophrenia
     Dosage: DOSAGE TEXT: 20 MILLIGRAM, TWO TIMES A DAY (10 MG, 2X/DAY)
     Route: 065
  5. HALOPERIDOL [Suspect]
     Active Substance: HALOPERIDOL
     Indication: Schizophrenia
     Dosage: DOSAGE TEXT: 5 MILLIGRAM, BID(2X/DAY), THERAPY START DATE : ASKU , THERAPY END DATE : ASKU
     Route: 065
  6. HALOPERIDOL [Suspect]
     Active Substance: HALOPERIDOL
     Indication: Schizophrenia
     Dosage: DOSAGE TEXT: 40 MILLIGRAM, ONCE A DAY (20MG BID), THERAPY START DATE : ASKU , THERAPY END DATE : ...
     Route: 065
  7. HALOPERIDOL [Suspect]
     Active Substance: HALOPERIDOL
     Indication: Schizophrenia
     Dosage: DOSAGE TEXT: 10 MG, QD, THERAPY START DATE : ASKU , THERAPY END DATE : ASKU
     Route: 065
  8. HALOPERIDOL [Suspect]
     Active Substance: HALOPERIDOL
     Indication: Schizophrenia
     Dosage: DOSAGE TEXT: 5 MILLIGRAM, ONCE A DAY, THERAPY START DATE : ASKU , THERAPY END DATE : ASKU
     Route: 065
  9. HALOPERIDOL [Suspect]
     Active Substance: HALOPERIDOL
     Indication: Schizophrenia
     Dosage: DOSAGE TEXT: 20 MG, QD, THERAPY START DATE : ASKU , THERAPY END DATE : ASKU
     Route: 065
  10. HALOPERIDOL [Suspect]
     Active Substance: HALOPERIDOL
     Indication: Schizophrenia
     Dosage: DOSAGE TEXT: 10 MG, BID(2X/DAY), THERAPY START DATE : ASKU , THERAPY END DATE : ASKU
     Route: 065
  11. HALOPERIDOL [Suspect]
     Active Substance: HALOPERIDOL
     Indication: Schizophrenia
     Dosage: DOSAGE TEXT: 20 MG, QD, THERAPY START DATE : ASKU , THERAPY END DATE : ASKU
     Route: 065
  12. HALOPERIDOL [Suspect]
     Active Substance: HALOPERIDOL
     Indication: Schizophrenia
     Dosage: DOSAGE TEXT: 5 MG, BID, THERAPY START DATE : ASKU , THERAPY END DATE : ASKU
     Route: 065
  13. HALOPERIDOL [Suspect]
     Active Substance: HALOPERIDOL
     Indication: Schizophrenia
     Dosage: DOSAGE TEXT: 5 MILLIGRAM, ONCE A DAY, THERAPY START DATE : ASKU , THERAPY END DATE : ASKU
     Route: 065
  14. HALOPERIDOL [Suspect]
     Active Substance: HALOPERIDOL
     Indication: Schizophrenia
     Dosage: DOSAGE TEXT: 10 MG, QD, THERAPY START DATE : ASKU , THERAPY END DATE : ASKU
     Route: 065
  15. HALOPERIDOL [Suspect]
     Active Substance: HALOPERIDOL
     Indication: Schizophrenia
     Dosage: DOSAGE TEXT: 5 MILLIGRAM, TWO TIMES A DAY (5 MG, BID), THERAPY START DATE : ASKU , THERAPY END DA...
     Route: 065
  16. HALOPERIDOL [Suspect]
     Active Substance: HALOPERIDOL
     Indication: Schizophrenia
     Dosage: DOSAGE TEXT: 20 MILLIGRAM, ONCE A DAY (10 MILLIGRAM, BID), THERAPY START DATE : ASKU , THERAPY EN...
     Route: 065
  17. HALOPERIDOL [Suspect]
     Active Substance: HALOPERIDOL
     Indication: Schizophrenia
     Dosage: DOSAGE TEXT: 5 MG, BID, THERAPY START DATE : ASKU , THERAPY END DATE : ASKU
     Route: 065
  18. AMOXICILLIN\CLAVULANATE POTASSIUM [Concomitant]
     Active Substance: AMOXICILLIN\CLAVULANATE POTASSIUM
     Indication: Febrile neutropenia
     Dosage: DOSAGE TEXT: 120 MG, OTHER (EVERY 9 WEEKS), UNIT DOSE :   625 MG, DURATION : 3 DAYS
     Dates: start: 20151111
  19. AMOXICILLIN\CLAVULANATE POTASSIUM [Concomitant]
     Active Substance: AMOXICILLIN\CLAVULANATE POTASSIUM
     Indication: Febrile neutropenia
     Dosage: DOSAGE TEXT: 625 MG (EVERY 0.33 DAYS, CUMULATIVE DOSE: 16875), UNIT DOSE :   625 MG, DURATION : 3...
     Dates: start: 20151122, end: 20151125
  20. AMOXICILLIN\CLAVULANATE POTASSIUM [Concomitant]
     Active Substance: AMOXICILLIN\CLAVULANATE POTASSIUM
     Indication: Febrile neutropenia
     Dosage: DOSAGE TEXT: 625 MG, QID, UNIT DOSE : 2500 MG, DURATION : 3 DAYS, FREQUENCY TIME : 1 DAY
     Dates: start: 20151122
  21. TAZOBACTAM SODIUM [Concomitant]
     Active Substance: TAZOBACTAM SODIUM
     Indication: Febrile neutropenia
     Dosage: DOSAGE TEXT: UNK
     Dates: start: 20151121
  22. TAZOBACTAM SODIUM [Concomitant]
     Active Substance: TAZOBACTAM SODIUM
     Indication: Febrile neutropenia
  23. TRASTUZUMAB [Suspect]
     Active Substance: TRASTUZUMAB
     Indication: Breast cancer metastatic
     Dosage: DOSAGE TEXT: UNIT DOSE: 1218 MILLIGRAM,  THERAPY END DATE : NASK, FREQUENCY TIME : 1 WEEKS
     Route: 065
     Dates: start: 20150930
  24. TRASTUZUMAB [Suspect]
     Active Substance: TRASTUZUMAB
     Indication: Breast cancer metastatic
     Dosage: DOSAGE TEXT: 840 MG, Q3W (CUMULATIVE DOSE: 2481.6667 MG, FREQUENCY TIME : 3 WEEKS
     Route: 065
  25. TRASTUZUMAB [Suspect]
     Active Substance: TRASTUZUMAB
     Indication: Breast cancer metastatic
     Dosage: DOSAGE TEXT: 609 MG, 2/W,  THERAPY END DATE : NASK, FREQUENCY TIME : 1 WEEKS
     Route: 065
     Dates: start: 20150930
  26. TRASTUZUMAB [Suspect]
     Active Substance: TRASTUZUMAB
     Indication: Breast cancer metastatic
     Dosage: DOSAGE TEXT: 609 MG, Q3W (1799.20 MG), THERAPY END DATE : ASKU, FREQUENCY TIME : 3 WEEKS
     Route: 065
     Dates: start: 20150930
  27. TRASTUZUMAB [Suspect]
     Active Substance: TRASTUZUMAB
     Indication: Breast cancer metastatic
     Dosage: DOSAGE TEXT: 420 MG, Q3W (CUMULATIVE DOSE: 820.83 MG), FREQUENCY TIME : 3 WEEKS
     Route: 065
  28. TRASTUZUMAB [Suspect]
     Active Substance: TRASTUZUMAB
     Indication: Breast cancer metastatic
     Route: 065
  29. TRASTUZUMAB [Suspect]
     Active Substance: TRASTUZUMAB
     Indication: Breast cancer metastatic
     Route: 065
  30. TRASTUZUMAB [Suspect]
     Active Substance: TRASTUZUMAB
     Indication: Breast cancer metastatic
     Route: 065
  31. TRASTUZUMAB [Suspect]
     Active Substance: TRASTUZUMAB
     Indication: Breast cancer metastatic
     Route: 065
  32. TRASTUZUMAB [Suspect]
     Active Substance: TRASTUZUMAB
     Indication: Breast cancer metastatic
     Route: 065
  33. ACETAMINOPHEN [Concomitant]
     Active Substance: ACETAMINOPHEN
     Indication: Pain
     Dosage: DOSAGE TEXT: 15 MG, DAILY, PARACETAMOL (NON MAH)
     Dates: start: 201510
  34. ACETAMINOPHEN [Concomitant]
     Active Substance: ACETAMINOPHEN
     Indication: Pain
     Dosage: DOSAGE TEXT: 500 MG, UNKNOWN
     Dates: start: 20150127
  35. PIPERACILLIN SODIUM\TAZOBACTAM SODIUM [Concomitant]
     Active Substance: PIPERACILLIN SODIUM\TAZOBACTAM SODIUM
     Indication: Febrile neutropenia
     Dosage: DOSAGE TEXT: UNK
     Dates: start: 20151121, end: 201511
  36. PIPERACILLIN SODIUM\TAZOBACTAM SODIUM [Concomitant]
     Active Substance: PIPERACILLIN SODIUM\TAZOBACTAM SODIUM
     Indication: Febrile neutropenia
  37. CLOZARIL [Suspect]
     Active Substance: CLOZAPINE
     Indication: Schizophrenia
     Dosage: DOSAGE TEXT: 50 MG, QD, THERAPY START DATE : ASKU , THERAPY END DATE : ASKU
     Route: 065
  38. CLOZARIL [Suspect]
     Active Substance: CLOZAPINE
     Indication: Schizophrenia
     Dosage: DOSAGE TEXT: 1 DF, QD, 1 DOSAGE FORM, ONCE A DAY (1 DF, EACH MORNING), THERAPY END DATE : ASKU
     Route: 065
     Dates: start: 2011
  39. CLOZARIL [Suspect]
     Active Substance: CLOZAPINE
     Indication: Schizophrenia
     Dosage: DOSAGE TEXT: 400 MG, BID, THERAPY START DATE : ASKU , THERAPY END DATE : ASKU
     Route: 065
  40. CLOZARIL [Suspect]
     Active Substance: CLOZAPINE
     Indication: Schizophrenia
     Dosage: DOSAGE TEXT: 400 MG QD, THERAPY END DATE : ASKU
     Route: 065
     Dates: start: 20201207
  41. CLOZARIL [Suspect]
     Active Substance: CLOZAPINE
     Indication: Schizophrenia
     Dosage: DOSAGE TEXT: 100 MG, QD(1X/DAY (AM)), THERAPY END DATE : ASKU
     Route: 065
     Dates: start: 2011
  42. CLOZARIL [Suspect]
     Active Substance: CLOZAPINE
     Indication: Schizophrenia
     Dosage: DOSAGE TEXT: UNK
     Route: 065
     Dates: start: 20200521, end: 2021
  43. CLOZARIL [Suspect]
     Active Substance: CLOZAPINE
     Indication: Schizophrenia
     Dosage: DOSAGE TEXT: 6000 MG
     Route: 065
     Dates: start: 20201209, end: 20201223
  44. CLOZARIL [Suspect]
     Active Substance: CLOZAPINE
     Indication: Schizophrenia
     Dosage: DOSAGE TEXT: 50 MG, QD(1X/DAY (MIDDAY)), THERAPY START DATE : ASKU , THERAPY END DATE : ASKU
     Route: 065
  45. CLOZARIL [Suspect]
     Active Substance: CLOZAPINE
     Indication: Schizophrenia
     Dosage: DOSAGE TEXT: 50 MG, DAILY
     Route: 065
     Dates: start: 20191209, end: 20191223
  46. CLOZARIL [Suspect]
     Active Substance: CLOZAPINE
     Indication: Schizophrenia
     Dosage: DOSAGE TEXT: 300 MILLIGRAM, ONCE A DAY
     Route: 065
  47. CLOZARIL [Suspect]
     Active Substance: CLOZAPINE
     Indication: Schizophrenia
     Dosage: DOSAGE TEXT: UNK DF, THERAPY END DATE : ASKU
     Route: 065
     Dates: start: 2011
  48. CLOZARIL [Suspect]
     Active Substance: CLOZAPINE
     Indication: Schizophrenia
     Dosage: DOSAGE TEXT: 245 MILLIGRAM, THERAPY END DATE : NASK
     Route: 065
     Dates: start: 20200521
  49. CLOZARIL [Suspect]
     Active Substance: CLOZAPINE
     Indication: Schizophrenia
     Dosage: DOSAGE TEXT: 6000 MG, THERAPY END DATE : ASKU
     Route: 065
     Dates: start: 20201207
  50. CLOZARIL [Suspect]
     Active Substance: CLOZAPINE
     Indication: Schizophrenia
     Route: 065
     Dates: start: 20191223, end: 20191223
  51. CLOZARIL [Suspect]
     Active Substance: CLOZAPINE
     Indication: Schizophrenia
     Dosage: DOSAGE TEXT: 6000 MG
     Route: 065
     Dates: start: 20201223, end: 20201223
  52. CLOZARIL [Suspect]
     Active Substance: CLOZAPINE
     Indication: Schizophrenia
     Dosage: DOSAGE TEXT: UNK, THERAPY END DATE : ASKU
     Route: 065
     Dates: start: 20100823
  53. CLOZARIL [Suspect]
     Active Substance: CLOZAPINE
     Indication: Schizophrenia
     Dosage: DOSAGE TEXT: 200 MILLIGRAM, TWO TIMES A DAY
     Route: 065
  54. CLOZARIL [Suspect]
     Active Substance: CLOZAPINE
     Indication: Schizophrenia
     Dosage: DOSAGE TEXT: 245 MILLIGRAM, ONCE A DAY, THERAPY END DATE : ASKU
     Route: 065
     Dates: start: 2011
  55. CLOZARIL [Suspect]
     Active Substance: CLOZAPINE
     Indication: Schizophrenia
     Dosage: DOSAGE TEXT: 200 MG, BID
     Route: 065
     Dates: start: 20191209, end: 20191223
  56. CLOZARIL [Suspect]
     Active Substance: CLOZAPINE
     Indication: Schizophrenia
     Dosage: DOSAGE TEXT: 800 MG DAILY, THERAPY END DATE : NASK
     Route: 065
     Dates: start: 20201207
  57. CLOZARIL [Suspect]
     Active Substance: CLOZAPINE
     Indication: Schizophrenia
     Dosage: DOSAGE TEXT: 200 MG, BID, THERAPY START DATE : ASKU , THERAPY END DATE : ASKU
     Route: 065
  58. CLOZARIL [Suspect]
     Active Substance: CLOZAPINE
     Indication: Schizophrenia
     Dosage: DOSAGE TEXT: 800 MG, QD, THERAPY START DATE : ASKU , THERAPY END DATE : ASKU
     Route: 065
  59. CLOZARIL [Suspect]
     Active Substance: CLOZAPINE
     Indication: Schizophrenia
     Dosage: DOSAGE TEXT: 245 MG, UNKNOWN
     Route: 065
     Dates: start: 20191223, end: 20191223
  60. CLOZARIL [Suspect]
     Active Substance: CLOZAPINE
     Indication: Schizophrenia
     Dosage: DOSAGE TEXT: 200 MILLIGRAM, TWO TIMES A DAY, THERAPY START DATE : ASKU , THERAPY END DATE : ASKU
     Route: 065
  61. CLOZARIL [Suspect]
     Active Substance: CLOZAPINE
     Indication: Schizophrenia
     Dosage: DOSAGE TEXT: UNK
     Route: 065
     Dates: start: 20191209, end: 20191223
  62. CLOZARIL [Suspect]
     Active Substance: CLOZAPINE
     Indication: Schizophrenia
     Dosage: DOSAGE TEXT: 245 MILLIGRAM, THERAPY END DATE : NASK
     Route: 065
     Dates: start: 20191207
  63. CLOZARIL [Suspect]
     Active Substance: CLOZAPINE
     Indication: Schizophrenia
     Dosage: DOSAGE TEXT: 245 MG
     Route: 065
     Dates: start: 20191209, end: 20191223
  64. CLOZARIL [Suspect]
     Active Substance: CLOZAPINE
     Indication: Schizophrenia
     Dosage: DOSAGE TEXT: 400 MG, QD, THERAPY START DATE : ASKU , THERAPY END DATE : ASKU
     Route: 065
  65. CLOZARIL [Suspect]
     Active Substance: CLOZAPINE
     Indication: Schizophrenia
     Dosage: DOSAGE TEXT: 100 MG, QD (100 MG, QD (EACH MORNING), THERAPY START DATE : ASKU , THERAPY END DATE ...
     Route: 065
  66. CLOZARIL [Suspect]
     Active Substance: CLOZAPINE
     Indication: Schizophrenia
     Dosage: DOSAGE TEXT: 200 MILLIGRAM, ONCE A DAY, 200 MILLIGRAM, BID OFF LABEL USE
     Route: 065
  67. CLOZARIL [Suspect]
     Active Substance: CLOZAPINE
     Indication: Schizophrenia
     Dosage: DOSAGE TEXT: UNK
     Route: 065
     Dates: start: 20191223, end: 20191223
  68. CLOZARIL [Suspect]
     Active Substance: CLOZAPINE
     Indication: Schizophrenia
     Dosage: DOSAGE TEXT: 400 MG, QD
     Route: 065
     Dates: start: 20191209, end: 20191223
  69. CLOZARIL [Suspect]
     Active Substance: CLOZAPINE
     Indication: Schizophrenia
     Dosage: DOSAGE TEXT: 400 MG, QD, THERAPY START DATE : ASKU , THERAPY END DATE : ASKU
     Route: 065
  70. CLOZARIL [Suspect]
     Active Substance: CLOZAPINE
     Indication: Schizophrenia
     Dosage: DOSAGE TEXT: 100 MG, QD, THERAPY START DATE : ASKU , THERAPY END DATE : ASKU
     Route: 065
  71. CLOZARIL [Suspect]
     Active Substance: CLOZAPINE
     Indication: Schizophrenia
     Dosage: DOSAGE TEXT: 400 MG, QD, THERAPY START DATE : ASKU , THERAPY END DATE : ASKU
     Route: 065
  72. CLOZARIL [Suspect]
     Active Substance: CLOZAPINE
     Indication: Schizophrenia
     Dosage: DOSAGE TEXT: 300 MILLIGRAM, ONCE A DAY PM, THERAPY END DATE : NASK
     Route: 065
     Dates: start: 20100823
  73. CLOZARIL [Suspect]
     Active Substance: CLOZAPINE
     Indication: Schizophrenia
     Dosage: DOSAGE TEXT: 275 MG, QD, THERAPY START DATE : ASKU , THERAPY END DATE : ASKU
     Route: 065
  74. CLOZARIL [Suspect]
     Active Substance: CLOZAPINE
     Indication: Schizophrenia
     Dosage: DOSAGE TEXT: UNK
     Route: 065
     Dates: start: 20191209, end: 20191223
  75. CLOZARIL [Suspect]
     Active Substance: CLOZAPINE
     Indication: Schizophrenia
     Dosage: DOSAGE TEXT: 50 MG, QD (MIDDAY), THERAPY END DATE : ASKU
     Route: 065
     Dates: start: 20200521
  76. CLOZARIL [Suspect]
     Active Substance: CLOZAPINE
     Indication: Schizophrenia
     Dosage: DOSAGE TEXT: 6000 MG, THERAPY END DATE : ASKU
     Route: 065
     Dates: start: 20200521
  77. CLOZARIL [Suspect]
     Active Substance: CLOZAPINE
     Indication: Schizophrenia
     Dosage: DOSAGE TEXT: UNK, QD
     Route: 065
     Dates: start: 20191223, end: 20191223
  78. CLOZARIL [Suspect]
     Active Substance: CLOZAPINE
     Indication: Schizophrenia
     Dosage: DOSAGE TEXT: 6000 MG, THERAPY END DATE : ASKU
     Route: 065
     Dates: start: 20201207
  79. CLOZARIL [Suspect]
     Active Substance: CLOZAPINE
     Indication: Schizophrenia
     Dosage: DOSAGE TEXT: 6000 MG
     Route: 065
     Dates: start: 20191223, end: 20191223
  80. CLOZARIL [Suspect]
     Active Substance: CLOZAPINE
     Indication: Schizophrenia
     Dosage: DOSAGE TEXT: 6000 MG
     Route: 065
     Dates: start: 20200521, end: 2020
  81. CLOZARIL [Suspect]
     Active Substance: CLOZAPINE
     Indication: Schizophrenia
     Dosage: DOSAGE TEXT: 600 MG, QD AM (1 ONCE A DAY), THERAPY END DATE : ASKU
     Route: 065
     Dates: start: 2011
  82. CLOZARIL [Suspect]
     Active Substance: CLOZAPINE
     Indication: Schizophrenia
     Dosage: DOSAGE TEXT: 275 MILLIGRAM, ONCE A DAY PM
     Route: 065
  83. CLOZARIL [Suspect]
     Active Substance: CLOZAPINE
     Indication: Schizophrenia
     Dosage: DOSAGE TEXT: 275 MG, QD, THERAPY START DATE : ASKU , THERAPY END DATE : ASKU
     Route: 065
  84. CLOZARIL [Suspect]
     Active Substance: CLOZAPINE
     Indication: Schizophrenia
     Dosage: DOSAGE TEXT: UNK
     Route: 065
     Dates: start: 20191207, end: 20191223
  85. CLOZARIL [Suspect]
     Active Substance: CLOZAPINE
     Indication: Schizophrenia
     Dosage: DOSAGE TEXT: 300 MG, QD(1X/DAY (PM)), THERAPY START DATE : ASKU , THERAPY END DATE : ASKU
     Route: 065
  86. CLOZARIL [Suspect]
     Active Substance: CLOZAPINE
     Indication: Schizophrenia
     Dosage: DOSAGE TEXT: 245 MILLIGRAM,  THERAPY END DATE : NASK
     Route: 065
     Dates: start: 20100823
  87. CLOZARIL [Suspect]
     Active Substance: CLOZAPINE
     Indication: Schizophrenia
     Dosage: DOSAGE TEXT: 275 MG, QD
     Route: 065
     Dates: start: 20200521, end: 2020
  88. CLOZARIL [Suspect]
     Active Substance: CLOZAPINE
     Indication: Schizophrenia
     Dosage: DOSAGE TEXT: 275 MG, QD, THERAPY START DATE : ASKU , THERAPY END DATE : ASKU
     Route: 065
  89. CLOZARIL [Suspect]
     Active Substance: CLOZAPINE
     Indication: Schizophrenia
     Dosage: DOSAGE TEXT: 245 MILLIGRAM, DAILY
     Route: 065
     Dates: start: 20191209, end: 20191223
  90. CLOZARIL [Suspect]
     Active Substance: CLOZAPINE
     Indication: Schizophrenia
     Dosage: DOSAGE TEXT: 6000 MG, THERAPY END DATE : ASKU
     Route: 065
     Dates: start: 20100823
  91. CLOZARIL [Suspect]
     Active Substance: CLOZAPINE
     Indication: Schizophrenia
     Dosage: DOSAGE TEXT: 400 MG, QD, THERAPY START DATE : ASKU , THERAPY END DATE : ASKU
     Route: 065
  92. RISPERDAL [Suspect]
     Active Substance: RISPERIDONE
     Indication: Schizophrenia
     Dosage: DOSAGE TEXT: 1 GRAM, ONCE A DAY, THERAPY START DATE : ASKU , THERAPY END DATE : ASKU
     Route: 065
  93. RISPERDAL [Suspect]
     Active Substance: RISPERIDONE
     Indication: Schizophrenia
     Dosage: DOSAGE TEXT: 6 MILLIGRAM, ONCE A DAY, THERAPY START DATE : ASKU , THERAPY END DATE : ASKU
     Route: 065
  94. RISPERDAL [Suspect]
     Active Substance: RISPERIDONE
     Indication: Schizophrenia
     Dosage: DOSAGE TEXT: 3 MILLIGRAM, TWO TIMES A DAY, THERAPY START DATE : ASKU , THERAPY END DATE : ASKU
     Route: 065
  95. RISPERDAL [Suspect]
     Active Substance: RISPERIDONE
     Indication: Schizophrenia
     Dosage: DOSAGE TEXT: 1 MG, QD, THERAPY START DATE : ASKU , THERAPY END DATE : ASKU
     Route: 065
  96. RISPERDAL [Suspect]
     Active Substance: RISPERIDONE
     Indication: Schizophrenia
     Dosage: DOSAGE TEXT: 6 MG, QD, 6 MILLIGRAM, ONCE A DAY (6 MG, QD, THERAPY START DATE : ASKU , THERAPY END...
     Route: 065
  97. RISPERDAL [Suspect]
     Active Substance: RISPERIDONE
     Indication: Schizophrenia
     Dosage: DOSAGE TEXT: 3 MG, BID, THERAPY START DATE : ASKU , THERAPY END DATE : ASKU
     Route: 065
  98. RISPERDAL [Suspect]
     Active Substance: RISPERIDONE
     Indication: Schizophrenia
     Dosage: DOSAGE TEXT: 2 MILLIGRAM, UNIT DOSE :   2 MG, FREQUENCY TIME : 12 HOURS
     Route: 065
  99. RISPERDAL [Suspect]
     Active Substance: RISPERIDONE
     Indication: Schizophrenia
     Dosage: DOSAGE TEXT: 4 MILLIGRAM, ONCE A DAY (4 MG, QD), UNIT DOSE :   4 MG, FREQUENCY TIME : 12 HOURS
     Route: 065
  100. RISPERDAL [Suspect]
     Active Substance: RISPERIDONE
     Indication: Schizophrenia
     Dosage: DOSAGE TEXT: 1 MILLIGRAM, QD, THERAPY START DATE : ASKU , THERAPY END DATE : ASKU
     Route: 065
  101. RISPERDAL [Suspect]
     Active Substance: RISPERIDONE
     Indication: Schizophrenia
     Dosage: DOSAGE TEXT: 6 MILLIGRAM, QD (3 MG, 2X/DAY), THERAPY START DATE : ASKU , THERAPY END DATE : ASKU
     Route: 065
  102. RISPERDAL [Suspect]
     Active Substance: RISPERIDONE
     Indication: Schizophrenia
     Dosage: DOSAGE TEXT: 3 MG, Q12H, THERAPY START DATE : ASKU , THERAPY END DATE : ASKU
     Route: 065
  103. RISPERDAL [Suspect]
     Active Substance: RISPERIDONE
     Indication: Schizophrenia
     Dosage: DOSAGE TEXT: 1 MILLIGRAM, ONCE A DAY (QD), THERAPY START DATE : ASKU , THERAPY END DATE : ASKU
     Route: 065
  104. RISPERDAL [Suspect]
     Active Substance: RISPERIDONE
     Indication: Schizophrenia
     Dosage: DOSAGE TEXT: 1 GRAM, QD, THERAPY START DATE : ASKU , THERAPY END DATE : ASKU
     Route: 065
  105. RISPERDAL [Suspect]
     Active Substance: RISPERIDONE
     Indication: Schizophrenia
     Dosage: DOSAGE TEXT: 1 G, DAILY, THERAPY START DATE : ASKU , THERAPY END DATE : ASKU
     Route: 065
  106. RISPERDAL [Suspect]
     Active Substance: RISPERIDONE
     Indication: Schizophrenia
     Dosage: DOSAGE TEXT: 2 MG, BID, THERAPY START DATE : ASKU , THERAPY END DATE : ASKU
     Route: 065
  107. RISPERDAL [Suspect]
     Active Substance: RISPERIDONE
     Indication: Schizophrenia
     Dosage: DOSAGE TEXT: 2 MG, BID, THERAPY START DATE : ASKU , THERAPY END DATE : ASKU
     Route: 065
  108. RISPERDAL [Suspect]
     Active Substance: RISPERIDONE
     Indication: Schizophrenia
     Dosage: DOSAGE TEXT: 3 MILLIGRAM, TWO TIMES A DAY, THERAPY START DATE : ASKU , THERAPY END DATE : ASKU
     Route: 065
  109. RISPERDAL [Suspect]
     Active Substance: RISPERIDONE
     Indication: Schizophrenia
     Dosage: DOSAGE TEXT: 1 G, DAILY
     Route: 065
  110. RISPERDAL [Suspect]
     Active Substance: RISPERIDONE
     Indication: Schizophrenia
     Dosage: DOSAGE TEXT: 2 MG, BID, THERAPY START DATE : ASKU , THERAPY END DATE : ASKU
     Route: 065
  111. RISPERDAL [Suspect]
     Active Substance: RISPERIDONE
     Indication: Schizophrenia
     Dosage: DOSAGE TEXT: 2 MILLIGRAM, BID, THERAPY START DATE : ASKU , THERAPY END DATE : ASKU
     Route: 065
  112. RISPERDAL [Suspect]
     Active Substance: RISPERIDONE
     Indication: Schizophrenia
     Dosage: DOSAGE TEXT: 1 G, DAILY, THERAPY START DATE : ASKU , THERAPY END DATE : ASKU
     Route: 065
  113. RISPERDAL [Suspect]
     Active Substance: RISPERIDONE
     Indication: Schizophrenia
     Dosage: DOSAGE TEXT: 4 MILLIGRAM, QD (2 MG, 2X/DAY), THERAPY START DATE : ASKU , THERAPY END DATE : ASKU
     Route: 065
  114. RISPERDAL [Suspect]
     Active Substance: RISPERIDONE
     Indication: Schizophrenia
     Dosage: DOSAGE TEXT: 3 MG, BID, THERAPY START DATE : ASKU , THERAPY END DATE : ASKU
     Route: 065
  115. RISPERDAL [Suspect]
     Active Substance: RISPERIDONE
     Indication: Schizophrenia
     Dosage: DOSAGE TEXT: 4 MILLIGRAM, ONCE A DAY (4 MG, QD), THERAPY START DATE : ASKU , THERAPY END DATE : ASKU
     Route: 065
  116. RISPERDAL [Suspect]
     Active Substance: RISPERIDONE
     Indication: Schizophrenia
     Dosage: DOSAGE TEXT: 1 G, QD
     Route: 065
  117. RISPERDAL [Suspect]
     Active Substance: RISPERIDONE
     Indication: Schizophrenia
     Dosage: DOSAGE TEXT: 2 MILLIGRAM, THERAPY START DATE : ASKU , THERAPY END DATE : ASKU
     Route: 065
  118. ARIPIPRAZOLE [Suspect]
     Active Substance: ARIPIPRAZOLE
     Indication: Schizophrenia
     Dosage: DOSAGE TEXT: 5 MG, THERAPY START DATE : ASKU , THERAPY END DATE : ASKU, UNIT DOSE :  5 MG
     Route: 065
  119. ARIPIPRAZOLE [Suspect]
     Active Substance: ARIPIPRAZOLE
     Indication: Schizophrenia
     Dosage: DOSAGE TEXT: 5 MG, THERAPY START DATE : ASKU , THERAPY END DATE : ASKU, UNIT DOSE :5 MG
     Route: 065
  120. ARIPIPRAZOLE [Suspect]
     Active Substance: ARIPIPRAZOLE
     Indication: Schizophrenia
     Dosage: DOSAGE TEXT: UNK, THERAPY START DATE : ASKU , THERAPY END DATE : ASKU
     Route: 065
  121. ARIPIPRAZOLE [Suspect]
     Active Substance: ARIPIPRAZOLE
     Indication: Schizophrenia
     Dosage: DOSAGE TEXT: 5 MG, THERAPY START DATE : ASKU , THERAPY END DATE : ASKU, UNIT DOSE :  5 MG
     Route: 065
  122. ARIPIPRAZOLE [Suspect]
     Active Substance: ARIPIPRAZOLE
     Indication: Schizophrenia
     Dosage: DOSAGE TEXT: 5 MG, THERAPY START DATE : ASKU , THERAPY END DATE : ASKU, UNIT DOSE :  5 MG
     Route: 065
  123. MORPHINE [Concomitant]
     Active Substance: MORPHINE
     Indication: Pain
     Dosage: DOSAGE TEXT: 30 MG (EVERY 0.5 DAY)
     Dates: start: 201509
  124. MORPHINE [Concomitant]
     Active Substance: MORPHINE
     Indication: Pain
     Dosage: DOSAGE TEXT: 30 MG, BID
     Dates: start: 201509
  125. MORPHINE [Concomitant]
     Active Substance: MORPHINE
     Indication: Pain
     Dosage: DOSAGE TEXT: 15 MG, DAILY
     Dates: start: 201510
  126. MORPHINE [Concomitant]
     Active Substance: MORPHINE
     Indication: Pain
     Dosage: DOSAGE TEXT: 60 MG, QD (30 MG, BID)
     Dates: start: 201509
  127. MIRTAZAPINE [Concomitant]
     Active Substance: MIRTAZAPINE
     Indication: Product used for unknown indication
     Dosage: DOSAGE TEXT: 15 MG, DAILY
     Dates: start: 201510
  128. MIRTAZAPINE [Concomitant]
     Active Substance: MIRTAZAPINE
     Indication: Product used for unknown indication
  129. PREGABALIN [Concomitant]
     Active Substance: PREGABALIN
     Indication: Product used for unknown indication
     Dosage: DOSAGE TEXT: 75 MG, EVERY 0.5 DAY
     Dates: start: 201509
  130. PREGABALIN [Concomitant]
     Active Substance: PREGABALIN
     Indication: Product used for unknown indication
     Dosage: DOSAGE TEXT: 75 MG, BID
     Dates: start: 201509
  131. PREGABALIN [Concomitant]
     Active Substance: PREGABALIN
     Indication: Product used for unknown indication
     Dosage: DOSAGE TEXT: 150 MILLIGRAM, QD
  132. PREGABALIN [Concomitant]
     Active Substance: PREGABALIN
     Indication: Product used for unknown indication
  133. ZUCLOPENTHIXOL [Suspect]
     Active Substance: ZUCLOPENTHIXOL
     Indication: Product used for unknown indication
     Dosage: DOSAGE TEXT: THERAPY END DATE : NASK, UNIT DOSE :   400 MG, DURATION : 6.543 YEARS
     Route: 065
     Dates: start: 20091018
  134. ZUCLOPENTHIXOL [Suspect]
     Active Substance: ZUCLOPENTHIXOL
     Indication: Product used for unknown indication
     Dosage: DOSAGE TEXT: 400 MG, QCY, UNIT DOSE :   400 MG, DURATION : 6.543 YEARS
     Route: 065
     Dates: start: 20040217, end: 20040601
  135. ZUCLOPENTHIXOL [Suspect]
     Active Substance: ZUCLOPENTHIXOL
     Indication: Product used for unknown indication
     Dosage: DOSAGE TEXT: 800 MG, QW, (04 FEB 2003), THERAPY START DATE  : NASK, UNIT DOSE :   800 MG, DURATIO...
     Route: 065
     Dates: end: 20040217
  136. ZUCLOPENTHIXOL [Suspect]
     Active Substance: ZUCLOPENTHIXOL
     Indication: Product used for unknown indication
     Dosage: DOSAGE TEXT: 400 MG, OTHER (BIWEEKLY), UNIT DOSE :   400 MG, DURATION : 6.543 YEARS, FREQUENCY TI...
     Route: 065
     Dates: start: 20041018, end: 20041018
  137. ZUCLOPENTHIXOL [Suspect]
     Active Substance: ZUCLOPENTHIXOL
     Indication: Product used for unknown indication
     Dosage: DOSAGE TEXT: 400 MG, BIW, UNIT DOSE :   800 MG, DURATION : 6.543 YEARS, FREQUENCY TIME : 1 WEEKS
     Route: 065
     Dates: start: 20040601, end: 20041018
  138. ZUCLOPENTHIXOL [Suspect]
     Active Substance: ZUCLOPENTHIXOL
     Indication: Product used for unknown indication
     Dosage: DOSAGE TEXT: 300 MG, QW (300 MILLIGRAM I.M WEEKLY),  THERAPY END DATE : ASKU, UNIT DOSE : 300 MG,...
     Route: 065
     Dates: start: 20091009
  139. ZUCLOPENTHIXOL [Suspect]
     Active Substance: ZUCLOPENTHIXOL
     Indication: Product used for unknown indication
     Dosage: DOSAGE TEXT: 400 MG, BIW, UNIT DOSE : 400 MG, DURATION : 6.543 YEARS, FREQUENCY TIME : 1 WEEKS
     Route: 065
     Dates: start: 20030204, end: 20040217
  140. ZUCLOPENTHIXOL [Suspect]
     Active Substance: ZUCLOPENTHIXOL
     Indication: Product used for unknown indication
     Dosage: DOSAGE TEXT: 400 MG, OTHER (BIWEEKLY), UNIT DOSE : 400 MG, DURATION : 6.543 YEARS, FREQUENCY TIME...
     Route: 065
     Dates: start: 20041018, end: 20041018
  141. ZUCLOPENTHIXOL [Suspect]
     Active Substance: ZUCLOPENTHIXOL
     Indication: Product used for unknown indication
     Dosage: DOSAGE TEXT: 400 MG, CYCLIC (400 MG, BIWEEKLY), UNIT DOSE :   400 MG, DURATION : 6.543 YEARS, FRE...
     Route: 065
     Dates: start: 20040601, end: 20041018
  142. ZUCLOPENTHIXOL [Suspect]
     Active Substance: ZUCLOPENTHIXOL
     Indication: Product used for unknown indication
     Dosage: DOSAGE TEXT: 300 MG, QD, THERAPY END DATE : ASKU, DURATION : 6.543 YEARS,
     Route: 065
     Dates: start: 20091009
  143. ZUCLOPENTHIXOL [Suspect]
     Active Substance: ZUCLOPENTHIXOL
     Indication: Product used for unknown indication
     Dosage: DOSAGE TEXT: 400 MG, BIW, UNIT DOSE :   800 MG, DURATION : 6.543 YEARS, FREQUENCY TIME : 1 WEEKS
     Route: 065
     Dates: start: 20041018, end: 20041018
  144. ZUCLOPENTHIXOL [Suspect]
     Active Substance: ZUCLOPENTHIXOL
     Indication: Product used for unknown indication
     Dosage: DOSAGE TEXT: 400 MILLIGRAM, EVERY WEEK, UNIT DOSE :   400 MG, DURATION : 6.543 YEARS, FREQUENCY T...
     Route: 065
  145. ZUCLOPENTHIXOL [Suspect]
     Active Substance: ZUCLOPENTHIXOL
     Indication: Product used for unknown indication
     Dosage: DOSAGE TEXT: CYCLE,  THERAPY END DATE : NASK, UNIT DOSE :   400 MG, DURATION : 6.543. YEARS
     Route: 065
     Dates: start: 20091018
  146. ZUCLOPENTHIXOL [Suspect]
     Active Substance: ZUCLOPENTHIXOL
     Indication: Product used for unknown indication
     Dosage: DOSAGE TEXT: 400 MG, CYCLIC (400 MG, BIWEEKLY); CYCLICAL, UNIT DOSE :   400 MG, DURATION : 6.543 ...
     Route: 065
     Dates: start: 20030204, end: 20040217
  147. ZUCLOPENTHIXOL [Suspect]
     Active Substance: ZUCLOPENTHIXOL
     Indication: Product used for unknown indication
     Dosage: DOSAGE TEXT: 400 MILLIGRAM, WEEKLY/17-FEB-2004, THERAPY START DATE  : NASK, UNIT DOSE :   400 MG,...
     Route: 065
     Dates: end: 20040601
  148. ZUCLOPENTHIXOL [Suspect]
     Active Substance: ZUCLOPENTHIXOL
     Indication: Product used for unknown indication
     Dosage: DOSAGE TEXT: 400 MG, QW, UNIT DOSE :   800 MG, DURATION : 6.543 YEARS, FREQUENCY TIME : 1 WEEKS
     Route: 065
     Dates: start: 20040217, end: 20040601
  149. ZUCLOPENTHIXOL [Suspect]
     Active Substance: ZUCLOPENTHIXOL
     Indication: Product used for unknown indication
     Dosage: DOSAGE TEXT: 300 MG, QW, THERAPY END DATE : ASKU, UNIT DOSE :   300 MG, DURATION : 6.543 YEARS, F...
     Route: 065
     Dates: start: 20091018
  150. ZUCLOPENTHIXOL [Suspect]
     Active Substance: ZUCLOPENTHIXOL
     Indication: Product used for unknown indication
     Dosage: DOSAGE TEXT: 400 MILLIGRAM, EVERY WEEK, UNIT DOSE :   800 MG, DURATION : 6.543 YEARS, FREQUENCY T...
     Route: 065
  151. ZUCLOPENTHIXOL [Suspect]
     Active Substance: ZUCLOPENTHIXOL
     Indication: Product used for unknown indication
     Dosage: DOSAGE TEXT: 300 MILLIGRAM, QD (300 MILLIGRAM I.M WEEKLY)09-OCT-2009, UNIT DOSE :   300 MG, DURAT...
     Route: 065
  152. ZUCLOPENTHIXOL [Suspect]
     Active Substance: ZUCLOPENTHIXOL
     Indication: Product used for unknown indication
     Dosage: DOSAGE TEXT: THERAPY START DATE : NASK, UNIT DOSE :   400 MG, DURATION : 6.543 YEARS
     Route: 065
     Dates: end: 20041018
  153. ZUCLOPENTHIXOL [Suspect]
     Active Substance: ZUCLOPENTHIXOL
     Indication: Product used for unknown indication
     Dosage: DOSAGE TEXT: UNK, THERAPY START DATE : ASKU , THERAPY END DATE : ASKU, DURATION : 6.543 YEARS
     Route: 065
  154. ZUCLOPENTHIXOL [Suspect]
     Active Substance: ZUCLOPENTHIXOL
     Indication: Product used for unknown indication
     Dosage: DOSAGE TEXT: 400 MG, CYCLIC (400 MG, BIWEEKLY), UNIT DOSE :   800 MG, DURATION : 6.543 YEARS, FRE...
     Route: 065
     Dates: start: 20030204, end: 20040217
  155. PERTUZUMAB [Suspect]
     Active Substance: PERTUZUMAB
     Indication: Breast cancer metastatic
     Dosage: DOSAGE TEXT: 2 U, WEEKLY (1/W), UNIT DOSE : 2 IU, FREQUENCY TIME : 1 WEEK
     Route: 065
  156. PERTUZUMAB [Suspect]
     Active Substance: PERTUZUMAB
     Indication: Breast cancer metastatic
     Dosage: DOSAGE TEXT: 420 MG, Q3W (CUMULATIVE DOSE: 820.83 MG)1, THERAPY END DATE : NASK, UNIT DOSE : 420 ...
     Route: 065
     Dates: start: 20151021
  157. PERTUZUMAB [Suspect]
     Active Substance: PERTUZUMAB
     Indication: Breast cancer metastatic
     Dosage: DOSAGE TEXT: 840 MG, Q3W (CUMULATIVE DOSE: 2481.6667 MG), THERAPY END DATE : NASK, UNIT DOSE :840...
     Route: 065
     Dates: start: 20150930
  158. PERTUZUMAB [Suspect]
     Active Substance: PERTUZUMAB
     Indication: Breast cancer metastatic
     Route: 065
  159. PERTUZUMAB [Suspect]
     Active Substance: PERTUZUMAB
     Indication: Breast cancer metastatic
     Route: 065
  160. PERTUZUMAB [Suspect]
     Active Substance: PERTUZUMAB
     Indication: Breast cancer metastatic
     Route: 065
  161. DOCETAXEL [Suspect]
     Active Substance: DOCETAXEL\DOCETAXEL ANHYDROUS
     Indication: Breast cancer metastatic
     Dosage: DOSAGE TEXT: UNK, THERAPY END DATE : NASK, DURATION : 63 DAYS
     Route: 065
     Dates: start: 20151222
  162. DOCETAXEL [Suspect]
     Active Substance: DOCETAXEL\DOCETAXEL ANHYDROUS
     Indication: Breast cancer metastatic
     Dosage: DOSAGE TEXT: UNIT DOSE : 220 MG, DURATION : 63 DAYS
     Route: 065
  163. DOCETAXEL [Suspect]
     Active Substance: DOCETAXEL\DOCETAXEL ANHYDROUS
     Indication: Breast cancer metastatic
     Dosage: DOSAGE TEXT: 110 MG, Q3W (CUMULATIVE DOSE: 324.98), DURATION : 63 DAYS, FREQUENCY TIME : 3 WEEKS
     Route: 065
     Dates: start: 20150930, end: 20151021
  164. DENOSUMAB [Concomitant]
     Active Substance: DENOSUMAB
     Indication: Gastrooesophageal reflux disease
     Dosage: DOSAGE TEXT: 625 MG, QID, UNIT DOSE : 120 MG , FREQUENCY TIME : 1 DAY
     Dates: start: 20150930
  165. DENOSUMAB [Concomitant]
     Active Substance: DENOSUMAB
     Indication: Gastrooesophageal reflux disease
     Dosage: DOSAGE TEXT: 120 MG, OTHER (EVERY 9 WEEKS)
     Dates: start: 20150930
  166. PACLITAXEL [Suspect]
     Active Substance: PACLITAXEL
     Indication: Breast cancer metastatic
     Dosage: DOSAGE TEXT: 120 MG, WEEKLY (1/W), THERAPY END DATE : NASK, DURATION : 41 DAYS, FREQUENCY TIME : ...
     Route: 065
     Dates: start: 20151111
  167. PACLITAXEL [Suspect]
     Active Substance: PACLITAXEL
     Indication: Breast cancer metastatic
     Dosage: DOSAGE TEXT: 120 MG, QW (CUMULATIVE DOSE: 377.142), FREQUENCY TIME : 1 WEEKS, UNIT DOSE : 120 MG,...
     Route: 065
     Dates: start: 20151223, end: 20151223
  168. PACLITAXEL [Suspect]
     Active Substance: PACLITAXEL
     Indication: Breast cancer metastatic
     Dosage: DOSAGE TEXT: 150 MG, QW (CUMULATIVE DOSE: 428.57 MG, FREQUENCY TIME : 1 WEEKS, UNIT DOSE : 150 MG...
     Route: 065
     Dates: start: 20151111, end: 20151222
  169. RANITIDINE [Concomitant]
     Active Substance: RANITIDINE
     Indication: Gastrooesophageal reflux disease
     Dosage: DOSAGE TEXT: 50 MILLIGRAM, QWK
  170. RANITIDINE [Concomitant]
     Active Substance: RANITIDINE
     Indication: Gastrooesophageal reflux disease
     Dosage: DOSAGE TEXT: 50 MILLIGRAM, QWK, UNIT DOSE :  75 MG
     Dates: start: 20151111
  171. RANITIDINE [Concomitant]
     Active Substance: RANITIDINE
     Indication: Gastrooesophageal reflux disease
     Dosage: DOSAGE TEXT: 50 MG, QW (CUMULATIVE DOSE: 142.857), UNIT DOSE : 50 MG , FREQUENCY TIME : 1 DAY
     Dates: start: 20151111
  172. RANITIDINE [Concomitant]
     Active Substance: RANITIDINE
     Indication: Gastrooesophageal reflux disease
     Dosage: DOSAGE TEXT: 50 MG, WEEKLY (1/W), UNIT DOSE : 50 MG , FREQUENCY TIME : 1 WEEKS
  173. LEVOFLOXACIN [Concomitant]
     Active Substance: LEVOFLOXACIN
     Indication: Febrile neutropenia
     Dosage: DOSAGE TEXT: 500 MG, DAILY
     Dates: start: 20151125
  174. LEVOFLOXACIN [Concomitant]
     Active Substance: LEVOFLOXACIN
     Indication: Febrile neutropenia
  175. OLANZAPINE [Suspect]
     Active Substance: OLANZAPINE
     Indication: Schizophrenia
     Dosage: DOSAGE TEXT: 15 MG, THERAPY END DATE : ASKU
     Route: 065
     Dates: start: 20060704
  176. OLANZAPINE [Suspect]
     Active Substance: OLANZAPINE
     Indication: Schizophrenia
     Dosage: DOSAGE TEXT: 10 MG, THERAPY START DATE : ASKU , THERAPY END DATE : ASKU
     Route: 065
  177. OLANZAPINE [Suspect]
     Active Substance: OLANZAPINE
     Indication: Schizophrenia
     Dosage: DOSAGE TEXT: 2.5 MG, THERAPY END DATE : ASKU
     Route: 065
     Dates: start: 20080823
  178. OLANZAPINE [Suspect]
     Active Substance: OLANZAPINE
     Indication: Schizophrenia
     Dosage: DOSAGE TEXT: UNK, THERAPY START DATE : ASKU , THERAPY END DATE : ASKU
     Route: 065
  179. OLANZAPINE [Suspect]
     Active Substance: OLANZAPINE
     Indication: Schizophrenia
     Dosage: DOSAGE TEXT: 10 MG, THERAPY START DATE : ASKU , THERAPY END DATE : ASKU
     Route: 065
  180. OLANZAPINE [Suspect]
     Active Substance: OLANZAPINE
     Indication: Schizophrenia
     Dosage: DOSAGE TEXT: 10 MG
     Route: 065
  181. OLANZAPINE [Suspect]
     Active Substance: OLANZAPINE
     Indication: Schizophrenia
     Dosage: DOSAGE TEXT: 15 MG, UNKNOWN, THERAPY END DATE : NASK
     Route: 065
     Dates: start: 20060704
  182. OLANZAPINE [Suspect]
     Active Substance: OLANZAPINE
     Indication: Schizophrenia
     Dosage: DOSAGE TEXT: 15 MG, THERAPY END DATE : ASKU
     Route: 065
     Dates: start: 20040217
  183. OLANZAPINE [Suspect]
     Active Substance: OLANZAPINE
     Indication: Schizophrenia
     Dosage: DOSAGE TEXT: 10 MG, THERAPY START DATE  : NASK ,  THERAPY END DATE : NASK, UNIT DOSE : 10 MG
     Route: 065
  184. OLANZAPINE [Suspect]
     Active Substance: OLANZAPINE
     Indication: Schizophrenia
     Dosage: DOSAGE TEXT: 10 MG, THERAPY START DATE : ASKU , THERAPY END DATE : ASKU, UNIT DOSE : 10 MG
     Route: 065
  185. OLANZAPINE [Suspect]
     Active Substance: OLANZAPINE
     Indication: Schizophrenia
     Dosage: DOSAGE TEXT: 1 MG, THERAPY START DATE : ASKU , THERAPY END DATE : ASKU, UNIT DOSE : 1 MG
     Route: 065
  186. CALCIUM\CHOLECALCIFEROL [Concomitant]
     Active Substance: CALCIUM\CHOLECALCIFEROL
     Indication: Product used for unknown indication
     Dates: start: 20091018
  187. CALCIUM\CHOLECALCIFEROL [Concomitant]
     Active Substance: CALCIUM\CHOLECALCIFEROL
     Indication: Product used for unknown indication
     Dosage: DOSAGE TEXT: UNIT DOSE : 2 DF , FREQUENCY TIME : 1 DAY
  188. CALCIUM\CHOLECALCIFEROL [Concomitant]
     Active Substance: CALCIUM\CHOLECALCIFEROL
     Indication: Product used for unknown indication
  189. CALCIUM\CHOLECALCIFEROL [Concomitant]
     Active Substance: CALCIUM\CHOLECALCIFEROL
     Indication: Product used for unknown indication
  190. LITHIUM [Suspect]
     Active Substance: LITHIUM
     Indication: Product used for unknown indication
     Dosage: DOSAGE TEXT: 6 MG, QD, THERAPY START DATE : ASKU , THERAPY END DATE : ASKU
     Route: 065
  191. LITHIUM [Suspect]
     Active Substance: LITHIUM
     Indication: Product used for unknown indication
     Dosage: DOSAGE TEXT: 1 G, THERAPY START DATE : ASKU , THERAPY END DATE : ASKU, UNIT DOSE : 1 G
     Route: 065
  192. LITHIUM [Suspect]
     Active Substance: LITHIUM
     Indication: Product used for unknown indication
     Dosage: DOSAGE TEXT: 1 G, THERAPY START DATE : ASKU , THERAPY END DATE : ASKU, UNIT DOSE : 1 G
     Route: 065
  193. LITHIUM [Suspect]
     Active Substance: LITHIUM
     Indication: Product used for unknown indication
     Dosage: DOSAGE TEXT: 1 MG, THERAPY START DATE : ASKU , THERAPY END DATE : ASKU UNIT DOSE : 1 G
     Route: 065
  194. LITHIUM [Suspect]
     Active Substance: LITHIUM
     Indication: Product used for unknown indication
     Dosage: DOSAGE TEXT: 2 G, THERAPY START DATE : ASKU , THERAPY END DATE : ASKU, UNIT DOSE : 2 G
     Route: 065
  195. GENTAMICIN [Concomitant]
     Active Substance: GENTAMICIN
     Indication: Febrile neutropenia
     Dates: start: 20151121, end: 201511
  196. GENTAMICIN [Concomitant]
     Active Substance: GENTAMICIN
     Indication: Febrile neutropenia
  197. CHLORPROMAZINE [Suspect]
     Active Substance: CHLORPROMAZINE
     Indication: Schizophrenia
     Dosage: DOSAGE TEXT: 75 MG, UNKNOWN, UNIT DOSE : 75 MG
     Route: 065
  198. CHLORPROMAZINE [Suspect]
     Active Substance: CHLORPROMAZINE
     Indication: Schizophrenia
     Dosage: DOSAGE TEXT: 75 MG, THERAPY START DATE : ASKU , THERAPY END DATE : ASKU, UNIT DOSE : 75 MG
     Route: 065
  199. CHLORPROMAZINE [Suspect]
     Active Substance: CHLORPROMAZINE
     Indication: Schizophrenia
     Dosage: DOSAGE TEXT: 75 MG, THERAPY START DATE : ASKU , THERAPY END DATE : ASKU UNIT DOSE : 75 MG
     Route: 065
  200. CHLORPROMAZINE [Suspect]
     Active Substance: CHLORPROMAZINE
     Indication: Schizophrenia
     Dosage: DOSAGE TEXT: 75 MG, THERAPY START DATE : ASKU , THERAPY END DATE : ASKU, UNIT DOSE : 75 MG
     Route: 065
  201. CHLORPROMAZINE [Suspect]
     Active Substance: CHLORPROMAZINE
     Indication: Schizophrenia
     Dosage: DOSAGE TEXT: 75 MG, UNIT DOSE : 75 MG
     Route: 065
  202. CHLORPROMAZINE [Suspect]
     Active Substance: CHLORPROMAZINE
     Indication: Schizophrenia
     Dosage: DOSAGE TEXT: 75 MG, THERAPY START DATE : ASKU , THERAPY END DATE : ASKU, UNIT DOSE : 75 MG
     Route: 065
  203. CHLORPROMAZINE [Suspect]
     Active Substance: CHLORPROMAZINE
     Indication: Schizophrenia
     Dosage: DOSAGE TEXT: 75 MG, THERAPY START DATE : ASKU , THERAPY END DATE : ASKU, UNIT DOSE : 75 MG
     Route: 065
  204. DULOXETINE [Concomitant]
     Active Substance: DULOXETINE
     Indication: Product used for unknown indication
  205. DULOXETINE [Concomitant]
     Active Substance: DULOXETINE
     Indication: Product used for unknown indication
  206. RISPERIDONE [Suspect]
     Active Substance: RISPERIDONE
     Indication: Schizophrenia
     Dosage: DOSAGE TEXT: 6 MILLIGRAM, ONCE A DAY
     Route: 065
  207. RISPERIDONE [Suspect]
     Active Substance: RISPERIDONE
     Indication: Schizophrenia
     Dosage: DOSAGE TEXT: 2 MG, BID
     Route: 065
  208. RISPERIDONE [Suspect]
     Active Substance: RISPERIDONE
     Indication: Schizophrenia
     Dosage: DOSAGE TEXT: (2 MG, BID)
     Route: 065
  209. RISPERIDONE [Suspect]
     Active Substance: RISPERIDONE
     Indication: Schizophrenia
     Dosage: DOSAGE TEXT: 1 GRAM, ONCE A DAY
     Route: 065
  210. RISPERIDONE [Suspect]
     Active Substance: RISPERIDONE
     Indication: Schizophrenia
     Dosage: DOSAGE TEXT: 4 MILLIGRAM, ONCE A DAY
     Route: 065
  211. RISPERIDONE [Suspect]
     Active Substance: RISPERIDONE
     Indication: Schizophrenia
     Dosage: DOSAGE TEXT: 3 MILLIGRAM, TWO TIMES A DAY (3 MG, BID)
     Route: 065
  212. RISPERIDONE [Suspect]
     Active Substance: RISPERIDONE
     Indication: Schizophrenia
     Dosage: DOSAGE TEXT: 2 MILLIGRAM, TWO TIMES A DAY (2 MG, BID)
     Route: 065
  213. RISPERIDONE [Suspect]
     Active Substance: RISPERIDONE
     Indication: Schizophrenia
     Dosage: DOSAGE TEXT: 6 MILLIGRAM, ONCE A DAY, UNIT DOSE : 12 MG, FREQUENCY TIME : 1 DAY
     Route: 065
  214. RISPERIDONE [Suspect]
     Active Substance: RISPERIDONE
     Indication: Schizophrenia
     Dosage: DOSAGE TEXT: 1 MILLIGRAM, DAILY
     Route: 065
  215. CHLORPHENIRAMINE MALEATE [Concomitant]
     Active Substance: CHLORPHENIRAMINE MALEATE
     Indication: Product used for unknown indication
     Dosage: DOSAGE TEXT: UNIT DOSE : 10 MG, FREQUENCY TIME : 1 WEEKS
     Dates: start: 20151111
  216. CHLORPHENIRAMINE MALEATE [Concomitant]
     Active Substance: CHLORPHENIRAMINE MALEATE
     Indication: Product used for unknown indication
  217. MORPHINE SULFATE [Concomitant]
     Active Substance: MORPHINE SULFATE
     Indication: Product used for unknown indication
     Dosage: DOSAGE TEXT: 10 MG
     Dates: start: 201509
  218. MORPHINE SULFATE [Concomitant]
     Active Substance: MORPHINE SULFATE
     Indication: Product used for unknown indication
  219. CHOLECALCIFEROL [Concomitant]
     Active Substance: CHOLECALCIFEROL
     Indication: Product used for unknown indication
     Dosage: DOSAGE TEXT: 2 DOSAGE FORM, QD
  220. CHOLECALCIFEROL [Concomitant]
     Active Substance: CHOLECALCIFEROL
     Indication: Product used for unknown indication
  221. LORAZEPAM [Suspect]
     Active Substance: LORAZEPAM
     Indication: Schizophrenia
     Dosage: DOSAGE TEXT: 1 MG, THERAPY START DATE : ASKU , THERAPY END DATE : ASKU
     Route: 065
  222. LORAZEPAM [Suspect]
     Active Substance: LORAZEPAM
     Indication: Schizophrenia
     Dosage: DOSAGE TEXT: 1 MG, THERAPY START DATE : ASKU , THERAPY END DATE : ASKU
     Route: 065
  223. LORAZEPAM [Suspect]
     Active Substance: LORAZEPAM
     Indication: Schizophrenia
     Dosage: DOSAGE TEXT: 1 MG, UNKNOWN
     Route: 065
  224. LORAZEPAM [Suspect]
     Active Substance: LORAZEPAM
     Indication: Schizophrenia
     Route: 065
  225. LORAZEPAM [Suspect]
     Active Substance: LORAZEPAM
     Indication: Schizophrenia
     Route: 065
  226. LORAZEPAM [Suspect]
     Active Substance: LORAZEPAM
     Indication: Schizophrenia
     Route: 065
  227. LORAZEPAM [Suspect]
     Active Substance: LORAZEPAM
     Indication: Schizophrenia
     Route: 065
  228. LORAZEPAM [Suspect]
     Active Substance: LORAZEPAM
     Indication: Schizophrenia
     Route: 065
  229. ZUCLOPENTHIXOL [Suspect]
     Active Substance: ZUCLOPENTHIXOL
     Indication: Product used for unknown indication
     Dosage: DOSAGE TEXT: 300 MG, WEEKLY, FREQUENCY TIME : 1 WEEKS, UNIT DOSE : 300 MG, DURATION : 106 DAYS
     Route: 065
  230. ZUCLOPENTHIXOL [Suspect]
     Active Substance: ZUCLOPENTHIXOL
     Indication: Product used for unknown indication
     Dosage: DOSAGE TEXT: 400 MILLIGRAM, CYCLICAL, (400 MG, CYCLIC (400 MG, BIWEEKLY), FREQUENCY TIME : 1 WEEK...
     Route: 065
     Dates: start: 20040217, end: 20040601
  231. ZUCLOPENTHIXOL [Suspect]
     Active Substance: ZUCLOPENTHIXOL
     Indication: Product used for unknown indication
     Route: 065
  232. ZUCLOPENTHIXOL [Suspect]
     Active Substance: ZUCLOPENTHIXOL
     Indication: Product used for unknown indication
     Route: 065

REACTIONS (33)
  - Off label use [Fatal]
  - Platelet count decreased [Fatal]
  - Fatigue [Fatal]
  - Rhinalgia [Fatal]
  - Cellulitis [Fatal]
  - Off label use [Fatal]
  - Psychotic disorder [Fatal]
  - Neutropenia [Fatal]
  - Fatigue [Fatal]
  - Diarrhoea [Fatal]
  - Dyspepsia [Fatal]
  - Extrapyramidal disorder [Fatal]
  - Delusion of grandeur [Fatal]
  - Extrapyramidal disorder [Fatal]
  - Off label use [Fatal]
  - Lymphocyte count decreased [Fatal]
  - Nausea [Fatal]
  - Seizure [Fatal]
  - Affective disorder [Fatal]
  - Leukopenia [Fatal]
  - COVID-19 [Fatal]
  - Overdose [Fatal]
  - Incorrect dose administered [Fatal]
  - Mucosal inflammation [Fatal]
  - Neuropathy peripheral [Fatal]
  - SARS-CoV-2 test positive [Fatal]
  - Lymphocyte count abnormal [Fatal]
  - Fatigue [Fatal]
  - Hallucination, auditory [Fatal]
  - Disease progression [Fatal]
  - Alopecia [Fatal]
  - Schizophrenia [Fatal]
  - Neutrophil count increased [Fatal]

NARRATIVE: CASE EVENT DATE: 20151101
